FAERS Safety Report 8262153-7 (Version None)
Quarter: 2012Q2

REPORT INFORMATION
  Report Type: 
  Country: None (occurrence: None)
  Receive Date: 20120405
  Receipt Date: 20120402
  Transmission Date: 20120825
  Serious: Yes (Hospitalization, Other)
  Sender: FDA-Public Use
  Company Number: US-PFIZER INC-2012078083

PATIENT
  Sex: Male
  Weight: 79.365 kg

DRUGS (4)
  1. LYRICA [Suspect]
     Indication: BACK PAIN
     Dosage: EITHER 50MG DAILY OR 75MG DAILY
     Dates: start: 20120301, end: 20120323
  2. LYRICA [Suspect]
     Indication: INTERVERTEBRAL DISC PROTRUSION
     Dosage: UNK
     Route: 048
     Dates: start: 20120101
  3. LYRICA [Suspect]
     Indication: HYPOAESTHESIA
  4. LYRICA [Suspect]
     Indication: NEUROPATHY PERIPHERAL

REACTIONS (4)
  - HEADACHE [None]
  - SINUS ARRHYTHMIA [None]
  - ATRIOVENTRICULAR BLOCK COMPLETE [None]
  - CONVULSION [None]
